FAERS Safety Report 7816055-8 (Version None)
Quarter: 2011Q4

REPORT INFORMATION
  Report Type: 
  Country: None (occurrence: None)
  Receive Date: 20111015
  Receipt Date: 20111005
  Transmission Date: 20120403
  Serious: Yes (Other)
  Sender: FDA-Public Use
  Company Number: JP-ASTRAZENECA-2010SE58463

PATIENT
  Age: 34 Year
  Sex: Female
  Weight: 30 kg

DRUGS (3)
  1. DIPRIVAN [Suspect]
     Dosage: CONTINUOUS ADMINISTRATION AT 5 MG/KG/H
     Route: 042
  2. DIPRIVAN [Suspect]
     Indication: GENERAL ANAESTHESIA
     Route: 040
  3. MIDAZOLAM HCL [Concomitant]
     Route: 065

REACTIONS (3)
  - HYPERAMYLASAEMIA [None]
  - PAROTID GLAND ENLARGEMENT [None]
  - PYREXIA [None]
